FAERS Safety Report 17433978 (Version 3)
Quarter: 2021Q1

REPORT INFORMATION
  Report Type: Spontaneous
  Country: US (occurrence: US)
  Receive Date: 20200219
  Receipt Date: 20210317
  Transmission Date: 20210419
  Serious: Yes (Other)
  Sender: FDA-Public Use
  Company Number: US-GILEAD-2020-0451422

PATIENT
  Age: 59 Year
  Sex: Female

DRUGS (18)
  1. ASPIRIN EC [Concomitant]
     Active Substance: ASPIRIN
  2. ATORVASTATIN CALCIUM. [Concomitant]
     Active Substance: ATORVASTATIN CALCIUM
  3. INTELENCE [Concomitant]
     Active Substance: ETRAVIRINE
  4. QVAR [Concomitant]
     Active Substance: BECLOMETHASONE DIPROPIONATE
  5. ATROVENT [Concomitant]
     Active Substance: IPRATROPIUM BROMIDE
  6. MONTELUKAST [Concomitant]
     Active Substance: MONTELUKAST SODIUM
  7. DESCOVY [Concomitant]
     Active Substance: EMTRICITABINE\TENOFOVIR ALAFENAMIDE FUMARATE
  8. PSEUDOEPHEDRINE HCL [Concomitant]
     Active Substance: PSEUDOEPHEDRINE HYDROCHLORIDE
  9. ESTRADIOL. [Concomitant]
     Active Substance: ESTRADIOL
  10. CHANTIX [Concomitant]
     Active Substance: VARENICLINE TARTRATE
  11. BIKTARVY [Concomitant]
     Active Substance: BICTEGRAVIR SODIUM\EMTRICITABINE\TENOFOVIR ALAFENAMIDE FUMARATE
  12. ISENTRESS [Concomitant]
     Active Substance: RALTEGRAVIR POTASSIUM
  13. LEVOTHYROXINE SODIUM. [Concomitant]
     Active Substance: LEVOTHYROXINE SODIUM
  14. TRUVADA [Suspect]
     Active Substance: EMTRICITABINE\TENOFOVIR DISOPROXIL FUMARATE
     Indication: HIV INFECTION
     Dosage: UNK
     Route: 048
     Dates: start: 2007, end: 201901
  15. VENTOLIN HFA [Concomitant]
     Active Substance: ALBUTEROL SULFATE
  16. CHLORPHENIRAMINE MALEATE. [Concomitant]
     Active Substance: CHLORPHENIRAMINE MALEATE
  17. VIREAD [Suspect]
     Active Substance: TENOFOVIR DISOPROXIL FUMARATE
     Indication: HIV INFECTION
     Dosage: UNK
     Route: 048
     Dates: start: 2002, end: 2007
  18. CETIRIZINE [Concomitant]
     Active Substance: CETIRIZINE HYDROCHLORIDE

REACTIONS (8)
  - Osteoporosis [Not Recovered/Not Resolved]
  - Osteopenia [Not Recovered/Not Resolved]
  - Bone density decreased [Not Recovered/Not Resolved]
  - Pain [Not Recovered/Not Resolved]
  - Osteonecrosis [Unknown]
  - Emotional distress [Not Recovered/Not Resolved]
  - Chronic kidney disease [Not Recovered/Not Resolved]
  - Bone loss [Unknown]

NARRATIVE: CASE EVENT DATE: 2016
